FAERS Safety Report 4585539-0 (Version None)
Quarter: 2005Q1

REPORT INFORMATION
  Report Type: 
  Country: None (occurrence: None)
  Receive Date: 20050214
  Receipt Date: 20040909
  Transmission Date: 20050727
  Serious: Yes (Hospitalization)
  Sender: FDA-Public Use
  Company Number: 05-028

PATIENT
  Sex: Female
  Weight: 71.2 kg

DRUGS (2)
  1. DEXAMETHASONE [Suspect]
     Indication: MULTIPLE MYELOMA
     Dosage: 40 MG
     Dates: start: 20020922, end: 20030316
  2. GENASENSE [Concomitant]

REACTIONS (3)
  - FEMUR FRACTURE [None]
  - HIP ARTHROPLASTY [None]
  - LUNG ADENOCARCINOMA [None]
